FAERS Safety Report 19328751 (Version 3)
Quarter: 2021Q3

REPORT INFORMATION
  Report Type: Spontaneous
  Country: US (occurrence: US)
  Receive Date: 20210528
  Receipt Date: 20210813
  Transmission Date: 20211014
  Serious: Yes (Hospitalization, Other)
  Sender: FDA-Public Use
  Company Number: US-FRESENIUS KABI-FK202105416

PATIENT
  Age: 69 Year
  Sex: Female
  Weight: 103.9 kg

DRUGS (4)
  1. FOLINIC ACID [Suspect]
     Active Substance: LEUCOVORIN
     Indication: GALLBLADDER CANCER
     Route: 042
     Dates: start: 20210406, end: 20210406
  2. IRINOTECAN [Suspect]
     Active Substance: IRINOTECAN
     Indication: GALLBLADDER CANCER
     Dosage: NANOLIPOSOMAL IRINOTECAN
     Route: 042
     Dates: start: 20210406, end: 20210406
  3. FLUOROURACIL (MANUFACTURER UNKNOWN) [Suspect]
     Active Substance: FLUOROURACIL
     Indication: GALLBLADDER CANCER
     Route: 042
     Dates: start: 20210406, end: 20210406
  4. NIVOLUMAB [Suspect]
     Active Substance: NIVOLUMAB
     Indication: GALLBLADDER CANCER
     Route: 042
     Dates: start: 20210406, end: 20210406

REACTIONS (4)
  - Acute kidney injury [Recovered/Resolved]
  - Pneumonitis [Recovered/Resolved]
  - Diverticulitis [Recovered/Resolved]
  - Diarrhoea [Not Recovered/Not Resolved]

NARRATIVE: CASE EVENT DATE: 20210416
